FAERS Safety Report 8585487-5 (Version None)
Quarter: 2012Q3

REPORT INFORMATION
  Report Type: 
  Country: None (occurrence: None)
  Receive Date: 20120810
  Receipt Date: 20120417
  Transmission Date: 20120928
  Serious: No
  Sender: FDA-Public Use
  Company Number: US-GLAXOSMITHKLINE-A0974870A

PATIENT
  Age: 62 Year
  Sex: Female

DRUGS (1)
  1. REQUIP XL [Suspect]
     Indication: PRODUCT USED FOR UNKNOWN INDICATION
     Dosage: 2MG PER DAY
     Route: 065
     Dates: start: 20120321

REACTIONS (2)
  - OEDEMA PERIPHERAL [None]
  - IMPULSIVE BEHAVIOUR [None]
